FAERS Safety Report 23205725 (Version 1)
Quarter: 2023Q4

REPORT INFORMATION
  Report Type: Spontaneous
  Country: None (occurrence: GB)
  Receive Date: 20231120
  Receipt Date: 20231120
  Transmission Date: 20240110
  Serious: Yes (Other)
  Sender: FDA-Public Use
  Company Number: GB-LHC2023005679

PATIENT
  Age: 44 Year
  Sex: Male

DRUGS (1)
  1. OXYGEN [Suspect]
     Active Substance: OXYGEN
     Indication: Cluster headache
     Route: 055

REACTIONS (3)
  - Malaise [Unknown]
  - Confusional state [Unknown]
  - Suicidal ideation [Unknown]
